FAERS Safety Report 23821681 (Version 4)
Quarter: 2024Q4

REPORT INFORMATION
  Report Type: Spontaneous
  Country: KR (occurrence: KR)
  Receive Date: 20240506
  Receipt Date: 20241001
  Transmission Date: 20250114
  Serious: No
  Sender: PFIZER
  Company Number: KR-PFIZER INC-PV202400056761

PATIENT
  Age: 7 Year
  Sex: Male

DRUGS (1)
  1. GENOTROPIN [Suspect]
     Active Substance: SOMATROPIN
     Dosage: 4.5 IU, 6 TIMES PER WEEK
     Dates: start: 202302

REACTIONS (2)
  - Poor quality device used [Unknown]
  - Product contamination physical [Unknown]
